FAERS Safety Report 23828260 (Version 5)
Quarter: 2024Q3

REPORT INFORMATION
  Report Type: Spontaneous
  Country: US (occurrence: US)
  Receive Date: 20240508
  Receipt Date: 20240702
  Transmission Date: 20241017
  Serious: Yes (Hospitalization)
  Sender: JOHNSON AND JOHNSON
  Company Number: US-JNJFOC-20240503260

PATIENT
  Age: 73 Year
  Sex: Male
  Weight: 99.426 kg

DRUGS (6)
  1. XARELTO [Suspect]
     Active Substance: RIVAROXABAN
     Indication: Pulmonary embolism
     Route: 048
     Dates: start: 20191026, end: 20240429
  2. XARELTO [Suspect]
     Active Substance: RIVAROXABAN
     Indication: Deep vein thrombosis
  3. METFORMIN HYDROCHLORIDE [Concomitant]
     Active Substance: METFORMIN HYDROCHLORIDE
     Indication: Diabetes mellitus
     Route: 048
     Dates: start: 2019
  4. TYLENOL [Concomitant]
     Active Substance: ACETAMINOPHEN
  5. CRESTOR [Concomitant]
     Active Substance: ROSUVASTATIN CALCIUM
     Indication: Hyperlipidaemia
     Route: 048
     Dates: start: 20220920
  6. NORVASC [Concomitant]
     Active Substance: AMLODIPINE BESYLATE
     Indication: Hypertension
     Route: 048
     Dates: start: 2019

REACTIONS (14)
  - Pulmonary embolism [Recovering/Resolving]
  - Syncope [Unknown]
  - Cerebral haemorrhage [Recovered/Resolved]
  - Deep vein thrombosis [Unknown]
  - Sinus node dysfunction [Unknown]
  - Thrombosis [Unknown]
  - Fall [Recovering/Resolving]
  - Blood potassium increased [Unknown]
  - Blood glucose increased [Unknown]
  - Contusion [Recovering/Resolving]
  - Heart rate irregular [Unknown]
  - Head injury [Recovering/Resolving]
  - Dizziness [Unknown]
  - Limb injury [Unknown]

NARRATIVE: CASE EVENT DATE: 20240429
